FAERS Safety Report 7578822-8 (Version None)
Quarter: 2011Q2

REPORT INFORMATION
  Report Type: 
  Country: None (occurrence: None)
  Receive Date: 20110628
  Receipt Date: 20110628
  Transmission Date: 20111010
  Serious: Yes (Other)
  Sender: FDA-Public Use
  Company Number: US-UCBSA-036081

PATIENT
  Sex: Male

DRUGS (4)
  1. CIMZIA [Suspect]
     Route: 058
     Dates: start: 20110623
  2. CIMZIA [Suspect]
     Indication: CROHN'S DISEASE
     Route: 058
     Dates: start: 20090102, end: 20110501
  3. GLIMEPIRIDE [Concomitant]
     Indication: TYPE 2 DIABETES MELLITUS
     Route: 048
  4. MERCAPTOPURINE [Concomitant]
     Indication: CROHN'S DISEASE

REACTIONS (2)
  - SQUAMOUS CELL CARCINOMA [None]
  - EYE INFLAMMATION [None]
